FAERS Safety Report 4773012-6 (Version None)
Quarter: 2005Q3

REPORT INFORMATION
  Report Type: 
  Country: None (occurrence: None)
  Receive Date: 20050916
  Receipt Date: 20050907
  Transmission Date: 20060218
  Serious: Yes (Other)
  Sender: FDA-Public Use
  Company Number: HQWYE331109SEP05

PATIENT
  Age: 54 Year
  Sex: Female

DRUGS (1)
  1. ADVIL [Suspect]
     Indication: HEADACHE
     Dosage: , AS NEEDED ORAL
     Route: 048
     Dates: start: 20050814, end: 20050814

REACTIONS (7)
  - ALLERGY TEST POSITIVE [None]
  - OEDEMA PERIPHERAL [None]
  - PARAESTHESIA ORAL [None]
  - RASH ERYTHEMATOUS [None]
  - RASH PRURITIC [None]
  - SWELLING FACE [None]
  - URTICARIA [None]
